FAERS Safety Report 16100062 (Version 2)
Quarter: 2019Q2

REPORT INFORMATION
  Report Type: Report from Study
  Country: US (occurrence: US)
  Receive Date: 20190321
  Receipt Date: 20190426
  Transmission Date: 20190711
  Serious: Yes (Hospitalization)
  Sender: FDA-Public Use
  Company Number: US-JNJFOC-20190323924

PATIENT
  Age: 17 Year
  Sex: Female
  Weight: 44.3 kg

DRUGS (6)
  1. CETIRIZINE [Concomitant]
     Active Substance: CETIRIZINE HYDROCHLORIDE
     Route: 065
  2. REMICADE [Suspect]
     Active Substance: INFLIXIMAB
     Indication: INFLAMMATORY BOWEL DISEASE
     Route: 042
     Dates: start: 20160922
  3. MELATONIN [Concomitant]
     Active Substance: MELATONIN
     Route: 065
  4. DENTA 5000 PLUS [Concomitant]
     Active Substance: SODIUM FLUORIDE
     Route: 065
  5. ESCITALOPRAM [Concomitant]
     Active Substance: ESCITALOPRAM OXALATE
     Route: 065
  6. LOPERAMIDE [Concomitant]
     Active Substance: LOPERAMIDE
     Route: 065

REACTIONS (1)
  - Gastroenteritis rotavirus [Recovered/Resolved]

NARRATIVE: CASE EVENT DATE: 20190215
